FAERS Safety Report 9562340 (Version 2)
Quarter: 2014Q3

REPORT INFORMATION
  Report Type: Spontaneous
  Country: US (occurrence: US)
  Receive Date: 20130927
  Receipt Date: 20140813
  Transmission Date: 20150326
  Serious: Yes (Hospitalization, Other)
  Sender: FDA-Public Use
  Company Number: US-009507513-1309USA012055

PATIENT
  Sex: Female
  Weight: 117.91 kg

DRUGS (1)
  1. NUVARING [Suspect]
     Active Substance: ETHINYL ESTRADIOL\ETONOGESTREL
     Indication: MENORRHAGIA
     Dosage: UNK
     Route: 067
     Dates: start: 2005, end: 20120410

REACTIONS (10)
  - Abortion induced [Unknown]
  - Fatigue [Unknown]
  - Pulmonary embolism [Unknown]
  - Uterine dilation and curettage [Unknown]
  - Myomectomy [Unknown]
  - Uterine leiomyoma [Unknown]
  - Arthralgia [Unknown]
  - Anaemia [Unknown]
  - Off label use [Unknown]
  - Foot operation [Unknown]

NARRATIVE: CASE EVENT DATE: 201004
